FAERS Safety Report 9943831 (Version 2)
Quarter: 2014Q1

REPORT INFORMATION
  Report Type: Report from Study
  Country: US (occurrence: US)
  Receive Date: 20140303
  Receipt Date: 20140303
  Transmission Date: 20141002
  Serious: Yes (Hospitalization)
  Sender: FDA-Public Use
  Company Number: US-ABBVIE-12P-163-1004387-00

PATIENT
  Sex: Female
  Weight: 148.91 kg

DRUGS (2)
  1. HUMIRA [Suspect]
     Indication: PSORIATIC ARTHROPATHY
     Route: 058
     Dates: start: 200907
  2. HUMIRA [Suspect]

REACTIONS (1)
  - External ear cellulitis [Recovered/Resolved]
